FAERS Safety Report 5830493-4 (Version None)
Quarter: 2008Q3

REPORT INFORMATION
  Report Type: 
  Country: None (occurrence: None)
  Receive Date: 20080801
  Receipt Date: 20080725
  Transmission Date: 20090109
  Serious: Yes (Other)
  Sender: FDA-Public Use
  Company Number: US-GENENTECH-263888

PATIENT
  Sex: Male
  Weight: 73.923 kg

DRUGS (2)
  1. AVASTIN [Suspect]
     Indication: MACULAR DEGENERATION
     Dosage: UNK, X2
     Route: 031
     Dates: start: 20070420
  2. CARDIAC MEDICATION NOS [Concomitant]
     Indication: DRUG USE FOR UNKNOWN INDICATION

REACTIONS (1)
  - CEREBROVASCULAR ACCIDENT [None]
